FAERS Safety Report 16951776 (Version 1)
Quarter: 2019Q4

REPORT INFORMATION
  Report Type: Spontaneous
  Country: JP (occurrence: JP)
  Receive Date: 20191023
  Receipt Date: 20191023
  Transmission Date: 20200122
  Serious: Yes (Death)
  Sender: FDA-Public Use
  Company Number: JP-TEIKOKU PHARMA USA, INC.-JP-2019TEI000003

PATIENT

DRUGS (2)
  1. TRASTUZUMAB. [Suspect]
     Active Substance: TRASTUZUMAB
     Indication: SALIVARY GLAND CANCER
     Dosage: 6 MG/KG, (LOADING DOSE 8 MG/KG)
  2. DOCETAXEL INJECTION (NON-ALCOHOL FORMULA) [Suspect]
     Active Substance: DOCETAXEL
     Indication: SALIVARY GLAND CANCER
     Dosage: 70 MG/M2, EVERY 3 WEEKS UP TO 8 CYCLES

REACTIONS (1)
  - Hypoalbuminaemia [Fatal]
